FAERS Safety Report 12411537 (Version 1)
Quarter: 2016Q2

REPORT INFORMATION
  Report Type: Spontaneous
  Country: AU (occurrence: AU)
  Receive Date: 20160527
  Receipt Date: 20160527
  Transmission Date: 20160815
  Serious: Yes (Other)
  Sender: FDA-Public Use
  Company Number: AU-BEH-2016063058

PATIENT
  Age: 68 Year

DRUGS (1)
  1. PRIVIGEN [Suspect]
     Active Substance: HUMAN IMMUNOGLOBULIN G
     Indication: MULTIFOCAL MOTOR NEUROPATHY

REACTIONS (9)
  - Nausea [Unknown]
  - Renal impairment [Unknown]
  - Malaise [Unknown]
  - Retching [Unknown]
  - Venous thrombosis [Unknown]
  - Thrombophlebitis superficial [Unknown]
  - Pyrexia [Unknown]
  - Rash [Unknown]
  - Musculoskeletal stiffness [Unknown]

NARRATIVE: CASE EVENT DATE: 20160429
